FAERS Safety Report 23842432 (Version 1)
Quarter: 2024Q2

REPORT INFORMATION
  Report Type: Spontaneous
  Country: US (occurrence: None)
  Receive Date: 20240509
  Receipt Date: 20240509
  Transmission Date: 20240715
  Serious: Yes (Death)
  Sender: FDA-Public Use
  Company Number: None

PATIENT
  Age: 81 Year
  Sex: Female

DRUGS (18)
  1. REPATHA [Suspect]
     Active Substance: EVOLOCUMAB
     Dosage: FREQUENCY : EVERY OTHER WEEK;?
     Route: 058
     Dates: start: 20210426
  2. CALCIUM [Concomitant]
     Active Substance: CALCIUM
  3. LISINOPRIL [Concomitant]
     Active Substance: LISINOPRIL
  4. LORAZEPAM [Concomitant]
     Active Substance: LORAZEPAM
  5. ESCITALOPRAM [Concomitant]
     Active Substance: ESCITALOPRAM OXALATE
  6. MAGNESIUM [Concomitant]
     Active Substance: MAGNESIUM
  7. AMLODIPINE BESYLATE [Concomitant]
     Active Substance: AMLODIPINE BESYLATE
  8. SOTALOL [Concomitant]
     Active Substance: SOTALOL
  9. IPRATROPI/ALB [Concomitant]
  10. ROSUVASTATIN [Concomitant]
     Active Substance: ROSUVASTATIN
  11. ASPIRIN [Concomitant]
     Active Substance: ASPIRIN
  12. BRILINTA [Concomitant]
     Active Substance: TICAGRELOR
  13. ISOSORBIDE MONONITRATE [Concomitant]
     Active Substance: ISOSORBIDE MONONITRATE
  14. FUROSEMIDE [Concomitant]
     Active Substance: FUROSEMIDE
  15. LANSOPRAZOLE [Concomitant]
     Active Substance: LANSOPRAZOLE
  16. HYDROXYZINE HYDROCHLORIDE [Concomitant]
     Active Substance: HYDROXYZINE HYDROCHLORIDE
  17. NITROSTAT [Concomitant]
     Active Substance: NITROGLYCERIN
  18. TYLENOL [Concomitant]
     Active Substance: ACETAMINOPHEN

REACTIONS (1)
  - Death [None]

NARRATIVE: CASE EVENT DATE: 20240501
